FAERS Safety Report 4291631-0 (Version None)
Quarter: 2004Q1

REPORT INFORMATION
  Report Type: 
  Country: None (occurrence: None)
  Receive Date: 20040126
  Receipt Date: 20030916
  Transmission Date: 20041129
  Serious: No
  Sender: FDA-Public Use
  Company Number: USA030947505

PATIENT
  Sex: Female

DRUGS (1)
  1. FORTEO [Suspect]

REACTIONS (2)
  - FEELING ABNORMAL [None]
  - NAUSEA [None]
